FAERS Safety Report 13712811 (Version 2)
Quarter: 2017Q3

REPORT INFORMATION
  Report Type: Report from Study
  Country: DE (occurrence: DE)
  Receive Date: 20170703
  Receipt Date: 20170719
  Transmission Date: 20171127
  Serious: Yes (Hospitalization, Other)
  Sender: FDA-Public Use
  Company Number: PHHY2017DE091848

PATIENT
  Age: 29 Year
  Sex: Female
  Weight: 89 kg

DRUGS (7)
  1. LOPERAMIDE [Concomitant]
     Active Substance: LOPERAMIDE
     Indication: MALIGNANT MELANOMA
     Dosage: 2 MG, QD
     Route: 048
     Dates: start: 20160815, end: 201609
  2. TAFINLAR [Suspect]
     Active Substance: DABRAFENIB MESYLATE
     Indication: METASTATIC MALIGNANT MELANOMA
     Dosage: 300 MG, BID
     Route: 048
     Dates: start: 20160504, end: 20160721
  3. TAFINLAR [Suspect]
     Active Substance: DABRAFENIB MESYLATE
     Indication: BRAF V600E MUTATION POSITIVE
  4. TRAMETINIB [Suspect]
     Active Substance: TRAMETINIB
     Indication: BRAF V600E MUTATION POSITIVE
  5. TRAMETINIB [Suspect]
     Active Substance: TRAMETINIB
     Indication: METASTATIC MALIGNANT MELANOMA
     Dosage: 2 MG, QD
     Route: 048
     Dates: start: 20160504, end: 20160721
  6. IPILIMUMAB [Suspect]
     Active Substance: IPILIMUMAB
     Indication: MALIGNANT MELANOMA
     Dosage: 3 DF, QW
     Route: 042
     Dates: start: 20160725, end: 20160819
  7. NIVOLUMAB [Suspect]
     Active Substance: NIVOLUMAB
     Indication: MALIGNANT MELANOMA
     Dosage: 3 DF, QW
     Route: 042
     Dates: start: 20160725, end: 20160819

REACTIONS (3)
  - Colitis [Recovered/Resolved]
  - Autoimmune thyroiditis [Unknown]
  - Incorrect dose administered [Unknown]

NARRATIVE: CASE EVENT DATE: 20160504
